FAERS Safety Report 8237475-6 (Version None)
Quarter: 2012Q1

REPORT INFORMATION
  Report Type: 
  Country: None (occurrence: None)
  Receive Date: 20120327
  Receipt Date: 20120316
  Transmission Date: 20120608
  Serious: Yes (Other)
  Sender: FDA-Public Use
  Company Number: PHHY2012CA010511

PATIENT
  Sex: Male

DRUGS (1)
  1. AFINITOR [Suspect]
     Indication: NEUROENDOCRINE CARCINOMA METASTATIC
     Dosage: 10MG DAILY
     Route: 048
     Dates: start: 20111121, end: 20120201

REACTIONS (2)
  - RENAL DISORDER [None]
  - HAEMOLYTIC URAEMIC SYNDROME [None]
